FAERS Safety Report 6620865-2 (Version None)
Quarter: 2010Q1

REPORT INFORMATION
  Report Type: 
  Country: None (occurrence: None)
  Receive Date: 20100309
  Receipt Date: 20090518
  Transmission Date: 20100710
  Serious: No
  Sender: FDA-Public Use
  Company Number: US-BIOGENIDEC-2009BI015470

PATIENT
  Age: 49 Year
  Sex: Female

DRUGS (1)
  1. AVONEX [Suspect]
     Indication: MULTIPLE SCLEROSIS
     Route: 030
     Dates: start: 20070328, end: 20070502

REACTIONS (4)
  - DYSSTASIA [None]
  - FALL [None]
  - INFLUENZA LIKE ILLNESS [None]
  - MOBILITY DECREASED [None]
